FAERS Safety Report 7351207-5 (Version None)
Quarter: 2011Q1

REPORT INFORMATION
  Report Type: 
  Country: None (occurrence: None)
  Receive Date: 20110304
  Receipt Date: 20110222
  Transmission Date: 20110831
  Serious: Yes (Hospitalization)
  Sender: FDA-Public Use
  Company Number: 2011GW000125

PATIENT
  Sex: Male

DRUGS (2)
  1. ZYCLARA [Suspect]
     Indication: PRODUCT USED FOR UNKNOWN INDICATION
     Dosage: 3.75 PCT; HS; TOP
     Route: 061
     Dates: start: 20110125, end: 20110204
  2. ALCOHOL (ETHANOL) [Suspect]
     Indication: PRODUCT USED FOR UNKNOWN INDICATION
     Dosage: PO
     Route: 048

REACTIONS (14)
  - DECREASED APPETITE [None]
  - MOTOR DYSFUNCTION [None]
  - ENCEPHALITIS [None]
  - AGITATION [None]
  - ALCOHOL INTERACTION [None]
  - LOSS OF CONSCIOUSNESS [None]
  - MOVEMENT DISORDER [None]
  - BLOOD PRESSURE INCREASED [None]
  - BLOOD ALCOHOL INCREASED [None]
  - CONJUNCTIVITIS [None]
  - GAIT DISTURBANCE [None]
  - FEELING ABNORMAL [None]
  - DRUG INTERACTION [None]
  - CONFUSIONAL STATE [None]
